FAERS Safety Report 4773093-X (Version None)
Quarter: 2005Q3

REPORT INFORMATION
  Report Type: 
  Country: None (occurrence: None)
  Receive Date: 20050916
  Receipt Date: 20050909
  Transmission Date: 20060218
  Serious: Yes (Life-Threatening)
  Sender: FDA-Public Use
  Company Number: 2005AL003518

PATIENT
  Age: 57 Year
  Sex: Female
  Weight: 65.7716 kg

DRUGS (6)
  1. KADIAN [Suspect]
     Indication: ANXIETY
     Dosage: 20 MG; BID; PO
     Route: 048
     Dates: start: 20050902, end: 20050902
  2. NEURONTIN [Concomitant]
  3. PROTONIX [Concomitant]
  4. ALLEGRA [Concomitant]
  5. LIPITOR [Concomitant]
  6. ZOLOFT [Concomitant]

REACTIONS (7)
  - BURNING SENSATION [None]
  - DRUG HYPERSENSITIVITY [None]
  - DYSPNOEA [None]
  - LUNG DISORDER [None]
  - PRURITUS [None]
  - SWOLLEN TONGUE [None]
  - THROAT TIGHTNESS [None]
